FAERS Safety Report 5771671-2 (Version None)
Quarter: 2008Q2

REPORT INFORMATION
  Report Type: 
  Country: None (occurrence: None)
  Receive Date: 20080611
  Receipt Date: 20080526
  Transmission Date: 20081010
  Serious: Yes (Hospitalization)
  Sender: FDA-Public Use
  Company Number: 2008EU001021

PATIENT
  Age: 54 Year
  Sex: Male

DRUGS (8)
  1. PROGRAF [Suspect]
     Indication: RENAL TRANSPLANT
     Dosage: /D, ORAL
     Route: 048
     Dates: start: 20070308
  2. RITUXAN [Suspect]
     Indication: KIDNEY TRANSPLANT REJECTION
     Route: 048
  3. MYFORTIC [Suspect]
     Indication: RENAL TRANSPLANT
     Dosage: /D, ORAL
     Route: 048
     Dates: start: 20071205, end: 20080213
  4. CIPRO [Suspect]
     Indication: PSEUDOMONAS INFECTION
     Dosage: /D, ORAL
     Route: 048
     Dates: start: 20080420, end: 20080429
  5. FOSRENOL [Suspect]
     Indication: HYPERPHOSPHATAEMIA
     Dosage: /D, ORAL
     Route: 048
     Dates: start: 20080417, end: 20080429
  6. AUGMENTIN(CLAVULANIC ACID) [Suspect]
     Indication: PSEUDOMONAS INFECTION
     Dosage: /D,
     Dates: start: 20080415, end: 20080420
  7. OFLOXACIN [Suspect]
     Indication: PSEUDOMONAS INFECTION
     Dosage: /D
     Dates: start: 20080417, end: 20080420
  8. TAZOCILLINE(PIPERACILLIN SODIUM, TAZOBACTAM SODIUM) [Suspect]
     Indication: PSEUDOMONAS INFECTION
     Dosage: /D
     Dates: start: 20080420, end: 20080501

REACTIONS (3)
  - AGRANULOCYTOSIS [None]
  - DIALYSIS [None]
  - PSEUDOMONAL SEPSIS [None]
